FAERS Safety Report 7442187-2 (Version None)
Quarter: 2011Q2

REPORT INFORMATION
  Report Type: 
  Country: None (occurrence: None)
  Receive Date: 20110420
  Receipt Date: 20110407
  Transmission Date: 20111010
  Serious: Yes (Hospitalization)
  Sender: FDA-Public Use
  Company Number: JP-2011-10283

PATIENT
  Age: 62 Year
  Sex: Male
  Weight: 58 kg

DRUGS (15)
  1. ARTIST (CARVEDILOL) [Concomitant]
  2. WARFARIN (WARFARIN POTASSIUM) [Concomitant]
  3. LASIX [Suspect]
     Indication: FLUID RETENTION
     Dosage: 40 MILLIGRAM(S), TID, ORAL
     Route: 048
  4. ALLOPURINOL [Concomitant]
  5. ARTIST (CARVEDILOL) [Concomitant]
  6. ASPARA POTASSIUM (POTASSIUM ASPARTATE) [Concomitant]
  7. SAMSCA [Suspect]
     Indication: FLUID RETENTION
     Dosage: 7.5 MG MILLIGRAM(S), QD, ORAL
     Route: 048
     Dates: start: 20101221, end: 20101230
  8. MAGMITT (MAGNESIUM OXIDE) [Concomitant]
  9. CLONAZEPAM [Concomitant]
  10. CLONAZEPAM [Concomitant]
  11. DIART (AZOSEMIDE) TABLET, 60MG MILLIGRAM(S) [Suspect]
     Indication: FLUID RETENTION
     Dosage: 60 MG MILLIGRAM(S), BID, ORAL
     Route: 048
  12. TRICHLORMETHIAZIDE [Suspect]
     Indication: FLUID RETENTION
     Dosage: 2 MG MILLIGRAM(S), QD, ORAL
     Route: 048
  13. SELARA (EPLERENONE) [Concomitant]
  14. LANIRAPID (METILDIGOXIN) [Concomitant]
  15. LEVOTHYROXINE SODIUM [Concomitant]

REACTIONS (5)
  - DEHYDRATION [None]
  - BLOOD UREA INCREASED [None]
  - HYPERNATRAEMIA [None]
  - HALLUCINATION, VISUAL [None]
  - DISORIENTATION [None]
